FAERS Safety Report 14028402 (Version 1)
Quarter: 2017Q3

REPORT INFORMATION
  Report Type: Spontaneous
  Country: DE (occurrence: DE)
  Receive Date: 20170930
  Receipt Date: 20170930
  Transmission Date: 20171128
  Serious: Yes (Other)
  Sender: FDA-Public Use
  Company Number: DE-AMGEN-DEUSP2017137332

PATIENT
  Age: 48 Year
  Sex: Male
  Weight: 71.66 kg

DRUGS (16)
  1. REPATHA [Suspect]
     Active Substance: EVOLOCUMAB
     Indication: BLOOD CHOLESTEROL ABNORMAL
  2. DEKRISTOL [Concomitant]
     Active Substance: CHOLECALCIFEROL
     Dosage: 20000 IU, UNK
     Dates: start: 20151026
  3. FOLSAEURE [Concomitant]
     Active Substance: FOLIC ACID
     Dosage: 400 MUG, QD
     Dates: start: 20170515
  4. VITAMIN B12 [Concomitant]
     Active Substance: CYANOCOBALAMIN
     Dosage: 100 MUG, UNK
     Dates: start: 20170515
  5. TOUJEO [Concomitant]
     Active Substance: INSULIN GLARGINE
     Indication: DIABETES MELLITUS
     Dosage: UNK
     Dates: start: 20170606
  6. EZETROL [Concomitant]
     Active Substance: EZETIMIBE
     Indication: BLOOD CHOLESTEROL ABNORMAL
     Dosage: 10 MG, QD
     Dates: start: 20170821
  7. LIPIDIL [Concomitant]
     Active Substance: FENOFIBRATE
     Indication: LIPIDS ABNORMAL
     Dosage: 145 UNK, QD
     Dates: start: 20091201
  8. ASPIRIN. [Concomitant]
     Active Substance: ASPIRIN
     Dosage: 50 MG, BID
     Dates: start: 20130513
  9. ATORVASTATIN [Concomitant]
     Active Substance: ATORVASTATIN
     Dosage: UNK
  10. MULTIVITAMIN [Concomitant]
     Active Substance: VITAMINS
     Dosage: UNK
     Dates: start: 20170515
  11. CALCIUM [Concomitant]
     Active Substance: CALCIUM
     Dosage: 1000 MG, BID
     Dates: start: 20170515
  12. REPATHA [Suspect]
     Active Substance: EVOLOCUMAB
     Indication: HYPERCHOLESTEROLAEMIA
     Dosage: UNK UNK, Q2WK
     Route: 058
     Dates: start: 20160707
  13. BETAMANN [Concomitant]
     Dosage: UNK
     Dates: start: 20050307
  14. HUMALOG [Concomitant]
     Active Substance: INSULIN LISPRO
     Dosage: 80 IU, QD
     Dates: start: 20160418
  15. METFORMIN [Concomitant]
     Active Substance: METFORMIN HYDROCHLORIDE
     Indication: DIABETES MELLITUS
     Dosage: 1000 MG, BID
     Dates: start: 20141023
  16. PANTOPRAZOL [Concomitant]
     Active Substance: PANTOPRAZOLE SODIUM
     Dosage: 40 MG, QD
     Dates: start: 20170515

REACTIONS (10)
  - Weight decreased [Unknown]
  - Bundle branch block right [Unknown]
  - Chronic kidney disease [Unknown]
  - Low density lipoprotein increased [Unknown]
  - Hiatus hernia [Unknown]
  - Sinus bradycardia [Unknown]
  - Cutaneous sarcoidosis [Unknown]
  - Drug ineffective [Unknown]
  - Metabolic surgery [Unknown]
  - Gastrooesophageal reflux disease [Unknown]

NARRATIVE: CASE EVENT DATE: 20170126
